FAERS Safety Report 22191869 (Version 1)
Quarter: 2023Q2

REPORT INFORMATION
  Report Type: Spontaneous
  Country: US (occurrence: None)
  Receive Date: 20230407
  Receipt Date: 20230407
  Transmission Date: 20230721
  Serious: Yes (Disabling)
  Sender: FDA-Public Use
  Company Number: None

PATIENT
  Age: 52 Year
  Sex: Male
  Weight: 91.35 kg

DRUGS (1)
  1. FINASTERIDE [Suspect]
     Active Substance: FINASTERIDE
     Indication: Alopecia
     Dates: start: 20200501, end: 20221009

REACTIONS (5)
  - Erectile dysfunction [None]
  - Depression [None]
  - Suicidal ideation [None]
  - Mental impairment [None]
  - Eye disorder [None]

NARRATIVE: CASE EVENT DATE: 20230209
